FAERS Safety Report 8283491 (Version 3)
Quarter: 2012Q4

REPORT INFORMATION
  Report Type: 
  Country: US (occurrence: US)
  Receive Date: 20111122
  Receipt Date: 20120829
  Transmission Date: 20130627
  Serious: Yes (Other)
  Sender: FDA-Public Use
  Company Number: PHHY2011US63731

PATIENT
  Age: 38 None
  Sex: Female

DRUGS (5)
  1. GILENYA [Suspect]
     Indication: RELAPSING-REMITTING MULTIPLE SCLEROSIS
     Dosage: 0.5 mg, QOD
     Route: 048
     Dates: start: 200902, end: 201101
  2. GILENYA [Suspect]
     Dosage: 0.5 mg, QOD
     Route: 048
     Dates: start: 20110301
  3. ADDERALL XR [Concomitant]
     Indication: FATIGUE
     Dosage: 20 mg, QOD
  4. ATIVAN [Concomitant]
     Indication: ANXIETY
     Dosage: 0.5 mg, QHS
  5. CYMBALTA [Concomitant]
     Dosage: 60 mg, QOD

REACTIONS (6)
  - Multiple sclerosis relapse [Recovered/Resolved]
  - Central nervous system lesion [Recovered/Resolved]
  - Pain in extremity [Recovered/Resolved]
  - Hypoaesthesia [Recovered/Resolved]
  - Inappropriate schedule of drug administration [Unknown]
  - Asthma [None]
